FAERS Safety Report 8528938-4 (Version None)
Quarter: 2012Q3

REPORT INFORMATION
  Report Type: 
  Country: None (occurrence: None)
  Receive Date: 20120723
  Receipt Date: 20120717
  Transmission Date: 20120928
  Serious: No
  Sender: FDA-Public Use
  Company Number: US-PFIZER INC-2012172525

PATIENT
  Sex: Female

DRUGS (1)
  1. ADVIL [Suspect]
     Indication: MUSCULOSKELETAL DISCOMFORT
     Dosage: UNK

REACTIONS (3)
  - DYSPHAGIA [None]
  - MALAISE [None]
  - INSOMNIA [None]
